FAERS Safety Report 13746001 (Version 1)
Quarter: 2017Q3

REPORT INFORMATION
  Report Type: Spontaneous
  Country: US (occurrence: US)
  Receive Date: 20170712
  Receipt Date: 20170712
  Transmission Date: 20171127
  Serious: Yes (Hospitalization)
  Sender: FDA-Public Use
  Company Number: US-FRESENIUS MEDICAL CARE RENAL THERAPIES GROUP-FMC-1707-000732

PATIENT
  Age: 62 Year
  Sex: Male
  Weight: 66.4 kg

DRUGS (7)
  1. ATORVASTATIN [Concomitant]
     Active Substance: ATORVASTATIN
  2. COREG [Concomitant]
     Active Substance: CARVEDILOL
  3. SEVELAMER [Concomitant]
     Active Substance: SEVELAMER
  4. ASPRIN [Concomitant]
     Active Substance: ASPIRIN
  5. DELFLEX [Suspect]
     Active Substance: CALCIUM CHLORIDE\DEXTROSE\MAGNESIUM CHLORIDE\SODIUM CHLORIDE\SODIUM LACTATE
     Indication: END STAGE RENAL DISEASE
     Route: 033
  6. LANTUS [Concomitant]
     Active Substance: INSULIN GLARGINE
  7. CLOPIDOGREL [Concomitant]
     Active Substance: CLOPIDOGREL BISULFATE

REACTIONS (1)
  - Fluid overload [Recovered/Resolved]

NARRATIVE: CASE EVENT DATE: 20170613
